FAERS Safety Report 12319114 (Version 1)
Quarter: 2016Q2

REPORT INFORMATION
  Report Type: Other
  Country: US (occurrence: US)
  Receive Date: 20160429
  Receipt Date: 20160429
  Transmission Date: 20160815
  Serious: Yes (Other)
  Sender: FDA-Public Use
  Company Number: US-MORTON GROVE PHARMACEUTICALS, INC.-1051217

PATIENT
  Age: 41 Year
  Sex: Male

DRUGS (1)
  1. PHENYTOIN ORAL SUSPENSION, 125MG/5ML [Suspect]
     Active Substance: PHENYTOIN
     Route: 048

REACTIONS (6)
  - Nausea [None]
  - Anticonvulsant drug level increased [None]
  - Dizziness [None]
  - Generalised tonic-clonic seizure [None]
  - Anticonvulsant drug level below therapeutic [None]
  - Seizure [Unknown]
